FAERS Safety Report 4776456-1 (Version None)
Quarter: 2005Q3

REPORT INFORMATION
  Report Type: 
  Country: None (occurrence: None)
  Receive Date: 20050922
  Receipt Date: 20050803
  Transmission Date: 20060218
  Serious: Yes (Hospitalization, Other)
  Sender: FDA-Public Use
  Company Number: JP-MERCK-0508USA01550

PATIENT
  Age: 26 Year
  Sex: Female

DRUGS (4)
  1. PEPCID [Suspect]
     Indication: GASTRITIS
     Route: 042
     Dates: start: 20050702, end: 20050707
  2. ALUMINUM HYDROXIDE AND MAGNESIUM TRISILICATE [Concomitant]
     Route: 048
     Dates: start: 20050702, end: 20050803
  3. GASTROM [Concomitant]
     Route: 048
     Dates: start: 20050702, end: 20050803
  4. PEPCID RPD [Suspect]
     Indication: GASTRITIS
     Route: 048
     Dates: start: 20050708, end: 20050714

REACTIONS (4)
  - ALANINE AMINOTRANSFERASE INCREASED [None]
  - ASPARTATE AMINOTRANSFERASE INCREASED [None]
  - HEPATIC FUNCTION ABNORMAL [None]
  - PANCREATITIS ACUTE [None]
